FAERS Safety Report 5017764-9 (Version None)
Quarter: 2006Q2

REPORT INFORMATION
  Report Type: 
  Country: None (occurrence: None)
  Receive Date: 20060526
  Receipt Date: 20060516
  Transmission Date: 20061013
  Serious: Yes (Other)
  Sender: FDA-Public Use
  Company Number: 007522

PATIENT
  Age: 31 Year
  Sex: Female
  Weight: 52.2 kg

DRUGS (1)
  1. PLAN B [Suspect]
     Dosage: ORAL
     Route: 048
     Dates: start: 20040501, end: 20050301

REACTIONS (3)
  - ABORTION SPONTANEOUS [None]
  - DRUG EXPOSURE BEFORE PREGNANCY [None]
  - INFERTILITY [None]
